FAERS Safety Report 21131794 (Version 1)
Quarter: 2022Q3

REPORT INFORMATION
  Report Type: Spontaneous
  Country: US (occurrence: None)
  Receive Date: 20220725
  Receipt Date: 20220725
  Transmission Date: 20221027
  Serious: No
  Sender: FDA-Public Use
  Company Number: None

PATIENT
  Age: 38 Year
  Sex: Female

DRUGS (2)
  1. FLUOROURACIL [Suspect]
     Active Substance: FLUOROURACIL
     Indication: Rectal cancer
     Route: 042
  2. DEVICE [Suspect]
     Active Substance: DEVICE

REACTIONS (2)
  - Device delivery system issue [None]
  - Product dose omission issue [None]

NARRATIVE: CASE EVENT DATE: 20220722
